FAERS Safety Report 9146382 (Version 1)
Quarter: 2013Q1

REPORT INFORMATION
  Report Type: Spontaneous
  Country: US (occurrence: US)
  Receive Date: 20130307
  Receipt Date: 20130307
  Transmission Date: 20140127
  Serious: Yes (Other)
  Sender: FDA-Public Use
  Company Number: US-PFIZER INC-2013075102

PATIENT
  Age: 63 Year
  Sex: Female
  Weight: 68.5 kg

DRUGS (2)
  1. PREMARIN [Suspect]
     Indication: HOT FLUSH
     Dosage: 1.25 MG, 1X/DAY
     Route: 048
     Dates: end: 201302
  2. LIPITOR [Suspect]
     Indication: BLOOD CHOLESTEROL ABNORMAL
     Dosage: 10 MG, 1X/DAY

REACTIONS (1)
  - Diabetes mellitus [Unknown]
